FAERS Safety Report 7042093-1 (Version None)
Quarter: 2010Q3

REPORT INFORMATION
  Report Type: 
  Country: None (occurrence: None)
  Receive Date: 20100929
  Receipt Date: 20100818
  Transmission Date: 20110219
  Serious: No
  Sender: FDA-Public Use
  Company Number: US-WYE-H17003310

PATIENT
  Age: 67 Year
  Sex: Female
  Weight: 81.72 kg

DRUGS (4)
  1. PRISTIQ (DESVENLAFAXINE SUCCINATE MONOHYDRATE, TABLET, EXTENDED RELEAS [Suspect]
     Indication: DEPRESSION
     Dosage: 50 MG 1X PER 1 DAY, ORAL
     Route: 048
     Dates: start: 20100801
  2. SEROQUEL XR [Suspect]
     Indication: CRYING
  3. CYMBALTA [Concomitant]
  4. ATIVAN [Concomitant]

REACTIONS (3)
  - CONDITION AGGRAVATED [None]
  - CRYING [None]
  - DRUG INEFFECTIVE [None]
